FAERS Safety Report 4764087-9 (Version None)
Quarter: 2005Q3

REPORT INFORMATION
  Report Type: 
  Country: None (occurrence: None)
  Receive Date: 20050906
  Receipt Date: 20050824
  Transmission Date: 20060218
  Serious: Yes (Other)
  Sender: FDA-Public Use
  Company Number: 2005060409

PATIENT
  Age: 9 Year
  Sex: Male

DRUGS (2)
  1. GENOTROPIN [Suspect]
     Indication: GROWTH HORMONE DEFICIENCY
     Dosage: 1.2 MG (1.2 MG, 1 IN 1 D)
     Dates: start: 20041001
  2. CONCERTA [Concomitant]

REACTIONS (3)
  - BACTERIURIA [None]
  - GLOMERULONEPHRITIS [None]
  - HAEMATURIA [None]
